FAERS Safety Report 4781832-7 (Version None)
Quarter: 2005Q3

REPORT INFORMATION
  Report Type: 
  Country: None (occurrence: None)
  Receive Date: 20050928
  Receipt Date: 20050825
  Transmission Date: 20060218
  Serious: Yes (Hospitalization, Other)
  Sender: FDA-Public Use
  Company Number: JP-ABBOTT-05P-087-0309598-00

PATIENT
  Age: 14 Year
  Sex: Female
  Weight: 45.9 kg

DRUGS (5)
  1. CLARITHROMYCIN [Suspect]
     Indication: NASOPHARYNGITIS
     Route: 048
     Dates: start: 20050601, end: 20050604
  2. IBUPROFEN [Suspect]
     Indication: NASOPHARYNGITIS
     Route: 048
     Dates: start: 20050601, end: 20050606
  3. PL [Suspect]
     Indication: NASOPHARYNGITIS
     Route: 048
     Dates: start: 20050601, end: 20050606
  4. PRONASE [Concomitant]
     Indication: NASOPHARYNGITIS
     Route: 048
     Dates: start: 20050603, end: 20050606
  5. TRANEXAMIC ACID [Concomitant]
     Indication: NASOPHARYNGITIS
     Route: 048
     Dates: start: 20050601, end: 20050606

REACTIONS (10)
  - BLOOD BILIRUBIN INCREASED [None]
  - COMA HEPATIC [None]
  - DISSEMINATED INTRAVASCULAR COAGULATION [None]
  - HEPATITIS ACUTE [None]
  - HEPATOCELLULAR DAMAGE [None]
  - JAUNDICE [None]
  - MALAISE [None]
  - NAUSEA [None]
  - RASH [None]
  - VOMITING [None]
